FAERS Safety Report 8516759 (Version 4)
Quarter: 2013Q1

REPORT INFORMATION
  Report Type: Spontaneous
  Country: US (occurrence: None)
  Receive Date: 20120323
  Receipt Date: 20130201
  Transmission Date: 20140127
  Serious: Yes (Disabling, Other)
  Sender: FDA-Public Use
  Company Number: 2011030615

PATIENT
  Age: 55 Year
  Sex: Female
  Weight: 75.75 kg

DRUGS (31)
  1. HIZENTRA [Suspect]
     Indication: IMMUNODEFICIENCY COMMON VARIABLE
     Dosage: 11 G 1X/WEEK, 55 ML EVERY WEEK ON THREE TO FOUR SITES OVER 1.5 HOURS SUBCUTANEOUS
     Dates: start: 20111129, end: 20111129
  2. COLCRYS [Concomitant]
  3. ZITHROMAX [Concomitant]
  4. SINGULAIR [Concomitant]
  5. ALLEGRA [Concomitant]
  6. SYNTHROID [Concomitant]
  7. NEXIUM [Concomitant]
  8. FEMHFT (NORETHISTERONE) [Concomitant]
  9. FLEXERIL [Concomitant]
  10. MULTIVITAMIN (DAILY MULTIVITAMIN) [Concomitant]
  11. ACETAMINOPHEN (PARACETAMOL) [Concomitant]
  12. NAPROXEN (NAPROXEN) [Concomitant]
  13. TERAZOSIN (TERAZOSIN) [Concomitant]
  14. PRANDIN (DEFLAZACORT) [Concomitant]
  15. PSEUDOEPHEDRINE (PSEUDOEPHEDRINE) [Concomitant]
  16. TRAMADOL (TRAMADOL) [Concomitant]
  17. CALAN [Concomitant]
  18. ADVAIR (SERETIDE /01420901/) [Concomitant]
  19. MIRAPEX [Concomitant]
  20. FUROSEMIDE (FUROSEMIDE) [Concomitant]
  21. POTASSIUM CHLORIDE (POTASSIUM CHLORIDE) [Concomitant]
  22. LEVEMIR [Concomitant]
  23. NOVOLOG [Concomitant]
  24. FERROUS SULFATE (FERROUS SULFATE) [Concomitant]
  25. METOLAZONE (METOLAZONE) [Concomitant]
  26. CITRACAL (CALCIUM CITRATE) [Concomitant]
  27. VITAMIN D [Concomitant]
  28. LISINOPRIL (LISINOPRIL) [Concomitant]
  29. CITALOPRAM (CITALOPRAM) [Concomitant]
  30. RIBAVIRIN (RIBAVIRIN) [Concomitant]
  31. ZOFRAN (ONDANSETRON) [Concomitant]

REACTIONS (8)
  - Sinusitis [None]
  - Oedema peripheral [None]
  - Laceration [None]
  - Staphylococcal infection [None]
  - Injection site erythema [None]
  - Injection site bruising [None]
  - Infection [None]
  - Gout [None]
